FAERS Safety Report 5985923-4 (Version None)
Quarter: 2008Q4

REPORT INFORMATION
  Report Type: 
  Country: None (occurrence: None)
  Receive Date: 20081205
  Receipt Date: 20081205
  Transmission Date: 20090506
  Serious: Yes (Other)
  Sender: FDA-Public Use
  Company Number: None

PATIENT
  Age: 59 Year
  Sex: Male
  Weight: 62.5964 kg

DRUGS (1)
  1. SORAFENIB 200MG BAYER [Suspect]
     Indication: RENAL CELL CARCINOMA
     Dosage: 800MG BID PO
     Route: 048
     Dates: start: 20080606

REACTIONS (1)
  - SQUAMOUS CELL CARCINOMA [None]
